FAERS Safety Report 8718809 (Version 2)
Quarter: 2013Q4

REPORT INFORMATION
  Report Type: Report from Study
  Country: JP (occurrence: JP)
  Receive Date: 20120810
  Receipt Date: 20131106
  Transmission Date: 20140711
  Serious: Yes (Death)
  Sender: FDA-Public Use
  Company Number: JP-MERCK-1205USA05058

PATIENT
  Age: 79 Year
  Sex: Male

DRUGS (2)
  1. GLACTIV [Suspect]
     Indication: TYPE 2 DIABETES MELLITUS
     Dosage: 50 MG, QD
     Route: 048
     Dates: start: 20100708, end: 20100922
  2. DIOVAN [Concomitant]

REACTIONS (1)
  - Abdominal mass [Fatal]
